FAERS Safety Report 8928604 (Version 1)
Quarter: 2012Q4

REPORT INFORMATION
  Report Type: 
  Country: EC (occurrence: EC)
  Receive Date: 20121128
  Receipt Date: 20121128
  Transmission Date: 20130627
  Serious: Yes (Death)
  Sender: FDA-Public Use
  Company Number: PHHY2012EC108687

PATIENT
  Age: 82 Year
  Sex: Male

DRUGS (1)
  1. DIOVAN [Suspect]
     Dosage: 160 mg, QD
     Route: 048
     Dates: start: 20111011

REACTIONS (1)
  - Cardiac failure [Fatal]
